FAERS Safety Report 16647104 (Version 1)
Quarter: 2019Q3

REPORT INFORMATION
  Report Type: Report from Study
  Country: CA (occurrence: CA)
  Receive Date: 20190730
  Receipt Date: 20190730
  Transmission Date: 20191004
  Serious: Yes (Death, Life-Threatening, Hospitalization, Other)
  Sender: FDA-Public Use
  Company Number: CA-RECRO GAINESVILLE LLC-REPH-2019-000137

PATIENT
  Age: 80 Year
  Sex: Female

DRUGS (7)
  1. FUROSEMIDE. [Concomitant]
     Active Substance: FUROSEMIDE
     Dosage: 40 MILLIGRAM, QD
  2. VERAPAMIL HYDROCHLORIDE SUSTAINED RELEASE [Suspect]
     Active Substance: VERAPAMIL HYDROCHLORIDE
     Indication: ATRIAL FIBRILLATION
  3. DIGOXIN. [Suspect]
     Active Substance: DIGOXIN
     Dosage: 0.25 MILLIGRAM, QD
     Route: 048
  4. DIGOXIN. [Suspect]
     Active Substance: DIGOXIN
     Indication: ATRIAL FIBRILLATION
     Dosage: 0.25 MILLIGRAM, QD
     Route: 048
  5. VERAPAMIL HYDROCHLORIDE SUSTAINED RELEASE [Suspect]
     Active Substance: VERAPAMIL HYDROCHLORIDE
     Indication: ATRIAL FLUTTER
     Dosage: 80 MILLIGRAM, TID
     Route: 048
  6. DIGOXIN. [Suspect]
     Active Substance: DIGOXIN
     Dosage: 0.125 MILLIGRAM, QD
     Route: 048
  7. SLOW-K [Concomitant]
     Active Substance: POTASSIUM CHLORIDE
     Dosage: 2 TAB, QD

REACTIONS (9)
  - Pulmonary oedema [Fatal]
  - Decreased appetite [Recovered/Resolved]
  - Bradycardia [Unknown]
  - Pneumonia [Unknown]
  - Nausea [Recovered/Resolved]
  - Off label use [Recovered/Resolved]
  - Atrial flutter [Unknown]
  - Myocardial infarction [Unknown]
  - Drug interaction [Recovered/Resolved]
